FAERS Safety Report 10044382 (Version 1)
Quarter: 2014Q1

REPORT INFORMATION
  Report Type: Spontaneous
  Country: US (occurrence: None)
  Receive Date: 20140306
  Receipt Date: 20140306
  Transmission Date: 20141002
  Serious: Yes (Hospitalization)
  Sender: FDA-Public Use
  Company Number: 163-21880-13070294

PATIENT
  Age: 67 Year
  Sex: Female

DRUGS (10)
  1. REVLIMID (LENALIDOMIDE) (25 MILLIGRAM, CAPSULES) [Suspect]
     Indication: PLASMA CELL MYELOMA
     Dosage: 25MG, 21 IN 21 D, PO
     Route: 048
     Dates: start: 20130604
  2. DEXAMETHASONE (DEXAMETHASONE) [Concomitant]
  3. FENTANYL (FENTANYL) [Concomitant]
  4. FUROSEMIDE (FUROSEMIDE) [Concomitant]
  5. LORTAB (VICODIN) [Concomitant]
  6. LOSARTAN (LOSARTAN) [Concomitant]
  7. LYRICA (PREGABALIN) [Concomitant]
  8. COMPAZINE (PROCHLORPERAZINE EDISYLATE) [Concomitant]
  9. SYNTHROID (LEVOTHYROXINE SODIUM) [Concomitant]
  10. VELCADE (BORTEZOMIB) [Concomitant]

REACTIONS (1)
  - Pneumonia [None]
